FAERS Safety Report 4371208-9 (Version None)
Quarter: 2004Q2

REPORT INFORMATION
  Report Type: 
  Country: None (occurrence: None)
  Receive Date: 20040604
  Receipt Date: 20040601
  Transmission Date: 20050107
  Serious: Yes (Other)
  Sender: FDA-Public Use
  Company Number: FR-GLAXOSMITHKLINE-B0334259A

PATIENT
  Age: 64 Year
  Sex: Male

DRUGS (2)
  1. ZOVIRAX [Suspect]
     Indication: HERPES SIMPLEX
  2. VALACYCLOVIR HCL [Suspect]
     Indication: HERPES SIMPLEX
     Route: 048

REACTIONS (3)
  - HEPATIC CIRRHOSIS [None]
  - HEPATIC NEOPLASM MALIGNANT [None]
  - LIVER TRANSPLANT [None]
